FAERS Safety Report 4486710-9 (Version None)
Quarter: 2004Q4

REPORT INFORMATION
  Report Type: 
  Country: None (occurrence: None)
  Receive Date: 20041021
  Receipt Date: 20041012
  Transmission Date: 20050328
  Serious: Yes (Hospitalization, Other)
  Sender: FDA-Public Use
  Company Number: 2004238771US

PATIENT
  Age: 79 Year
  Sex: Female
  Weight: 59.9 kg

DRUGS (10)
  1. CELEBREX [Suspect]
     Indication: ARTHRALGIA
     Dosage: 200 MG, QD
     Dates: start: 20040201, end: 20041011
  2. PLAVIX [Concomitant]
  3. NITRODISC (NITROGLYCERIN) [Concomitant]
  4. SINGULAIR [Concomitant]
  5. HUMALOG [Concomitant]
  6. ZOCOR [Concomitant]
  7. AVAPRO [Concomitant]
  8. TYLENOL [Concomitant]
  9. ECOTRIN [Concomitant]
  10. DILTIAZEM [Concomitant]

REACTIONS (6)
  - CARDIAC DISORDER [None]
  - DRUG INEFFECTIVE [None]
  - EYE DISORDER [None]
  - FUNGAL INFECTION [None]
  - HAEMOPTYSIS [None]
  - HEADACHE POSTOPERATIVE [None]
